FAERS Safety Report 6701936-9 (Version None)
Quarter: 2010Q2

REPORT INFORMATION
  Report Type: 
  Country: None (occurrence: None)
  Receive Date: 20100429
  Receipt Date: 20100427
  Transmission Date: 20101027
  Serious: Yes (Hospitalization)
  Sender: FDA-Public Use
  Company Number: IE-ROCHE-673812

PATIENT
  Sex: Female

DRUGS (5)
  1. ROACTEMRA [Suspect]
     Indication: RHEUMATOID ARTHRITIS
     Dosage: FORM:INFUSION
     Route: 042
     Dates: start: 20091014, end: 20091014
  2. METHOTREXATE [Concomitant]
     Indication: RHEUMATOID ARTHRITIS
  3. FOLIC ACID [Concomitant]
     Indication: RHEUMATOID ARTHRITIS
  4. ELTROXIN [Concomitant]
     Indication: HYPOTHYROIDISM
  5. CALCICHEW D3 FORTE [Concomitant]
     Indication: OSTEOPOROSIS

REACTIONS (1)
  - VASCULITIS [None]
